FAERS Safety Report 8402958-2 (Version None)
Quarter: 2012Q2

REPORT INFORMATION
  Report Type: 
  Country: None (occurrence: None)
  Receive Date: 20120601
  Receipt Date: 20120528
  Transmission Date: 20120825
  Serious: Yes (Other)
  Sender: FDA-Public Use
  Company Number: SE-GLAXOSMITHKLINE-B0804949A

PATIENT
  Sex: Female

DRUGS (4)
  1. FLUTICASONE PROPIONATE/SALMETEROL [Suspect]
     Indication: ASTHMA
     Dosage: 1PUFF TWICE PER DAY
     Route: 055
  2. FORMOTEROL FUMARATE [Concomitant]
     Indication: ASTHMA
     Route: 055
  3. OMEPRAZOLE [Concomitant]
     Indication: GASTRIC DISORDER
     Route: 065
  4. BETAPRED [Concomitant]
     Indication: ASTHMA
     Route: 065

REACTIONS (5)
  - OSTEOPOROSIS [None]
  - ABDOMINAL PAIN UPPER [None]
  - ADRENAL NEOPLASM [None]
  - DEPRESSION [None]
  - FATIGUE [None]
